FAERS Safety Report 6760552-3 (Version None)
Quarter: 2010Q2

REPORT INFORMATION
  Report Type: 
  Country: None (occurrence: None)
  Receive Date: 20100607
  Receipt Date: 20100607
  Transmission Date: 20101027
  Serious: Yes (Life-Threatening, Hospitalization)
  Sender: FDA-Public Use
  Company Number: None

PATIENT
  Age: 64 Year
  Sex: Female
  Weight: 117.4816 kg

DRUGS (4)
  1. BENDAMUSTINE [Suspect]
     Indication: SMALL CELL LUNG CANCER STAGE UNSPECIFIED
     Dosage: 280 MG, IV, D1 AND D2 OF EVERY 21 DAY CYCLE
     Route: 042
     Dates: start: 20100426
  2. BENDAMUSTINE [Suspect]
     Indication: SMALL CELL LUNG CANCER STAGE UNSPECIFIED
     Dosage: 280 MG, IV, D1 AND D2 OF EVERY 21 DAY CYCLE
     Route: 042
     Dates: start: 20100427
  3. BENDAMUSTINE [Suspect]
     Indication: SMALL CELL LUNG CANCER STAGE UNSPECIFIED
     Dosage: 280 MG, IV, D1 AND D2 OF EVERY 21 DAY CYCLE
     Route: 042
     Dates: start: 20100517
  4. BENDAMUSTINE [Suspect]
     Indication: SMALL CELL LUNG CANCER STAGE UNSPECIFIED
     Dosage: 280 MG, IV, D1 AND D2 OF EVERY 21 DAY CYCLE
     Route: 042
     Dates: start: 20100518

REACTIONS (3)
  - HYPERCOAGULATION [None]
  - ONCOLOGIC COMPLICATION [None]
  - PULMONARY EMBOLISM [None]
